FAERS Safety Report 6404200-0 (Version None)
Quarter: 2009Q4

REPORT INFORMATION
  Report Type: 
  Country: None (occurrence: None)
  Receive Date: 20091016
  Receipt Date: 20091005
  Transmission Date: 20100525
  Serious: Yes (Hospitalization, Other)
  Sender: FDA-Public Use
  Company Number: IT-PFIZER INC-2009278314

PATIENT
  Age: 26 Year

DRUGS (1)
  1. METHYLPREDNISOLONE ACETATE AND METHYLPREDNISOLONE AND METHYLPREDNISOLO [Suspect]
     Indication: INFLAMMATORY PSEUDOTUMOUR
     Dosage: 1000 MG, 1X/DAY
     Route: 042
     Dates: start: 20070515, end: 20070518

REACTIONS (2)
  - ANGINA PECTORIS [None]
  - VIRAL UPPER RESPIRATORY TRACT INFECTION [None]
